FAERS Safety Report 16037237 (Version 1)
Quarter: 2019Q1

REPORT INFORMATION
  Report Type: Spontaneous
  Country: US (occurrence: US)
  Receive Date: 20190305
  Receipt Date: 20190305
  Transmission Date: 20190418
  Serious: Yes (Other)
  Sender: FDA-Public Use
  Company Number: US-ELI_LILLY_AND_COMPANY-US201902013512

PATIENT
  Sex: Female

DRUGS (5)
  1. HUMULIN R U-500 [Suspect]
     Active Substance: INSULIN HUMAN
     Dosage: 120 U, SLIDING SCALE TWICE DAILY
     Route: 065
  2. HUMULIN R U-500 [Suspect]
     Active Substance: INSULIN HUMAN
     Indication: TYPE 2 DIABETES MELLITUS
     Dosage: 120 U, TID
     Route: 065
  3. HUMULIN R U-500 [Suspect]
     Active Substance: INSULIN HUMAN
     Dosage: 120 U, TID
     Route: 065
  4. HUMULIN R U-500 [Suspect]
     Active Substance: INSULIN HUMAN
     Dosage: 120 U, SLIDING SCALE TWICE DAILY
     Route: 065
  5. METFORMIN [Concomitant]
     Active Substance: METFORMIN HYDROCHLORIDE

REACTIONS (11)
  - Blood glucose increased [Recovering/Resolving]
  - Lens disorder [Recovering/Resolving]
  - Blood glucose increased [Recovering/Resolving]
  - Fungal infection [Unknown]
  - Head injury [Recovering/Resolving]
  - Weight decreased [Recovering/Resolving]
  - Urinary tract infection [Recovering/Resolving]
  - Stress [Recovering/Resolving]
  - Fall [Recovering/Resolving]
  - Visual impairment [Recovering/Resolving]
  - Blood glucose decreased [Recovering/Resolving]

NARRATIVE: CASE EVENT DATE: 2017
